FAERS Safety Report 5498857-9 (Version None)
Quarter: 2007Q4

REPORT INFORMATION
  Report Type: 
  Country: None (occurrence: None)
  Receive Date: 20071026
  Receipt Date: 20070727
  Transmission Date: 20080405
  Serious: No
  Sender: FDA-Public Use
  Company Number: A0666743A

PATIENT
  Age: 65 Year
  Sex: Female

DRUGS (6)
  1. ADVAIR DISKUS 100/50 [Suspect]
     Indication: ASTHMA
     Dosage: 1PUFF TWICE PER DAY
     Route: 055
     Dates: start: 20070725
  2. XANAX [Concomitant]
  3. UNKNOWN MEDICATION [Concomitant]
  4. SYNTHROID [Concomitant]
  5. CHLOROTHIAZIDE [Concomitant]
  6. PREVACID [Concomitant]

REACTIONS (3)
  - DIARRHOEA [None]
  - EYE PAIN [None]
  - EYE SWELLING [None]
